FAERS Safety Report 7170745-1 (Version None)
Quarter: 2010Q4

REPORT INFORMATION
  Report Type: 
  Country: None (occurrence: None)
  Receive Date: 20101206
  Receipt Date: 20101123
  Transmission Date: 20110411
  Serious: Yes (Other)
  Sender: FDA-Public Use
  Company Number: 760919

PATIENT
  Age: 70 Year
  Sex: Female
  Weight: 65.91 kg

DRUGS (1)
  1. VANCOMYCIN HYDROCHLORIDE [Suspect]
     Indication: DRUG HYPERSENSITIVITY
     Dosage: 1 GM, ONCE, INTRAVENOUS
     Route: 042
     Dates: start: 20101119, end: 20101119

REACTIONS (3)
  - DYSPNOEA [None]
  - INFUSION SITE PAIN [None]
  - RASH MACULAR [None]
